APPROVED DRUG PRODUCT: CHLORPROMAZINE HYDROCHLORIDE
Active Ingredient: CHLORPROMAZINE HYDROCHLORIDE
Strength: 10MG **Federal Register determination that product was not discontinued or withdrawn for safety or effectiveness reasons**
Dosage Form/Route: TABLET;ORAL
Application: A080439 | Product #001
Applicant: CHARTWELL RX SCIENCES LLC
Approved: Approved Prior to Jan 1, 1982 | RLD: No | RS: No | Type: DISCN